FAERS Safety Report 7550306-2 (Version None)
Quarter: 2011Q2

REPORT INFORMATION
  Report Type: 
  Country: None (occurrence: None)
  Receive Date: 20110615
  Receipt Date: 20110531
  Transmission Date: 20111010
  Serious: Yes (Hospitalization, Disabling, Other)
  Sender: FDA-Public Use
  Company Number: US-BAYER-2011-027489

PATIENT
  Age: 58 Year
  Sex: Female
  Weight: 72.58 kg

DRUGS (27)
  1. XOPENEX [Concomitant]
  2. ISOSORBIDE MONONITRATE [Concomitant]
  3. BECLOMETASONE DIPROPIONATE [Concomitant]
  4. DALTEPARIN SODIUM [Concomitant]
  5. TRAZODONE HCL [Concomitant]
  6. GUAIFENESIN [Concomitant]
  7. CRESTOR [Concomitant]
  8. AMLODIPINE [Concomitant]
  9. LISINOPRIL [Concomitant]
  10. ADVAIR DISKUS 100/50 [Concomitant]
  11. VALIUM [Concomitant]
  12. INFLUENZA VACCINE [INFLUENZA VACCINE] [Concomitant]
  13. METOPROLOL TARTRATE [Concomitant]
  14. BUSPAR [Concomitant]
  15. RIVAROXABAN [Suspect]
     Indication: ACUTE CORONARY SYNDROME
     Dosage: 2.5 MG OR 5 MG OR PLACEBO
     Route: 048
     Dates: start: 20090904, end: 20090904
  16. CLOPIDOGREL [Suspect]
     Indication: ACUTE CORONARY SYNDROME
     Route: 048
     Dates: start: 20090904, end: 20110318
  17. ATACAND [Concomitant]
  18. BENADRYL [Concomitant]
  19. CITALOPRAM HYDROBROMIDE [Concomitant]
  20. CARVEDILOL [Concomitant]
  21. RIVAROXABAN [Suspect]
     Dosage: 2.5 MG OR 5 MG OR PLACEBO
     Route: 048
     Dates: start: 20090905, end: 20110317
  22. ACETYLSALICYLIC ACID SRT [Suspect]
     Indication: ACUTE CORONARY SYNDROME
     Route: 048
     Dates: start: 20100720, end: 20110318
  23. SIMVASTATIN [Concomitant]
  24. MORPHINE [Concomitant]
  25. NIACIN [Concomitant]
  26. PEPCID [Concomitant]
  27. ALBUTEROL SULFATE AUTOHALER [Concomitant]

REACTIONS (3)
  - HEMIPARESIS [None]
  - PERITONEAL HAEMORRHAGE [None]
  - GROIN INFECTION [None]
